FAERS Safety Report 10038915 (Version 1)
Quarter: 2014Q1

REPORT INFORMATION
  Report Type: Spontaneous
  Country: US (occurrence: None)
  Receive Date: 20140306
  Receipt Date: 20140306
  Transmission Date: 20141002
  Serious: Yes (Other)
  Sender: FDA-Public Use
  Company Number: 163-21880-13064539

PATIENT
  Age: 53 Year
  Sex: Female
  Weight: 74.8 kg

DRUGS (4)
  1. REVLIMID [Suspect]
     Indication: MYELOFIBROSIS
     Dosage: 5MG, 21 IN 28D PO
     Route: 048
     Dates: start: 201208
  2. EXECDRIN MIGRAIN (THOMAPYRIN N) [Concomitant]
  3. LORTAB (VICODIN) (TABLETS) [Concomitant]
  4. IBUPROFEN (IBUPROFEN) (TABLETS) [Concomitant]

REACTIONS (3)
  - Oesophagitis [None]
  - Hiatus hernia [None]
  - Gastritis [None]
